FAERS Safety Report 14991903 (Version 1)
Quarter: 2018Q2

REPORT INFORMATION
  Report Type: Spontaneous
  Country: US (occurrence: US)
  Receive Date: 20180517
  Receipt Date: 20180517
  Transmission Date: 20180711
  Serious: No
  Sender: FDA-Public Use
  Company Number: None

PATIENT
  Sex: Male

DRUGS (1)
  1. OTEZLA [Suspect]
     Active Substance: APREMILAST

REACTIONS (5)
  - Diarrhoea [None]
  - Nausea [None]
  - Arthralgia [None]
  - Rectal haemorrhage [None]
  - Vomiting [None]
